FAERS Safety Report 24885825 (Version 2)
Quarter: 2025Q1

REPORT INFORMATION
  Report Type: Report from Study
  Country: CA (occurrence: CA)
  Receive Date: 20250125
  Receipt Date: 20250130
  Transmission Date: 20250408
  Serious: Yes (Other)
  Sender: DR REDDYS
  Company Number: CA-drreddys-USA/CAN/19/0113936

PATIENT
  Sex: Female

DRUGS (6)
  1. ZOLEDRONIC [Suspect]
     Active Substance: ZOLEDRONIC ACID
     Indication: Osteoporosis
     Dosage: 5 MG (BASE)/100 ML
     Route: 058
     Dates: start: 20171021, end: 20171021
  2. ZOLEDRONIC [Suspect]
     Active Substance: ZOLEDRONIC ACID
     Dosage: 5 MG (BASE)/100 ML
     Route: 058
     Dates: start: 20190924
  3. ZOLEDRONIC [Suspect]
     Active Substance: ZOLEDRONIC ACID
     Dosage: 5 MG (BASE)/100 ML
     Route: 058
     Dates: start: 20201219
  4. ZOLEDRONIC [Suspect]
     Active Substance: ZOLEDRONIC ACID
     Dosage: 5 MG (BASE)/100 ML
     Route: 058
     Dates: start: 20211122
  5. ZOLEDRONIC [Suspect]
     Active Substance: ZOLEDRONIC ACID
     Dosage: 5 MG (BASE)/100 ML
     Route: 058
     Dates: start: 20221214
  6. ZOLEDRONIC [Suspect]
     Active Substance: ZOLEDRONIC ACID
     Dosage: 5 MG (BASE)/100 ML
     Route: 058
     Dates: start: 20240116

REACTIONS (6)
  - Femur fracture [Unknown]
  - Hip fracture [Unknown]
  - Illness [Unknown]
  - Muscle spasms [Unknown]
  - Diarrhoea [Unknown]
  - Product dose omission issue [Unknown]
